FAERS Safety Report 13409576 (Version 3)
Quarter: 2022Q2

REPORT INFORMATION
  Report Type: Spontaneous
  Country: US (occurrence: US)
  Receive Date: 20170406
  Receipt Date: 20220619
  Transmission Date: 20220720
  Serious: No
  Sender: FDA-Public Use
  Company Number: US-JNJFOC-20170127725

PATIENT
  Age: 8 Year
  Sex: Male

DRUGS (5)
  1. RISPERDAL [Suspect]
     Active Substance: RISPERIDONE
     Indication: Anxiety disorder
     Dosage: AT VARYING OF 0.5 MG AND UNSPECIFIED DOSE
     Route: 048
     Dates: start: 20050802, end: 20061202
  2. RISPERDAL [Suspect]
     Active Substance: RISPERIDONE
     Indication: Affective disorder
     Route: 048
     Dates: end: 20070328
  3. RISPERDAL [Suspect]
     Active Substance: RISPERIDONE
     Route: 048
     Dates: end: 2008
  4. INVEGA [Suspect]
     Active Substance: PALIPERIDONE
     Indication: Affective disorder
     Route: 048
     Dates: start: 20050802
  5. INVEGA [Suspect]
     Active Substance: PALIPERIDONE
     Indication: Anxiety disorder
     Dosage: AT VARYING DOSE OF 3 MG AND UNSPECIFIED DOSE,
     Route: 048
     Dates: start: 20070328, end: 20151209

REACTIONS (5)
  - Emotional disorder [Unknown]
  - Gynaecomastia [Unknown]
  - Weight increased [Unknown]
  - Off label use [Unknown]
  - Product use in unapproved indication [Unknown]

NARRATIVE: CASE EVENT DATE: 20050802
